FAERS Safety Report 4889664-6 (Version None)
Quarter: 2006Q1

REPORT INFORMATION
  Report Type: 
  Country: None (occurrence: None)
  Receive Date: 20060120
  Receipt Date: 20051219
  Transmission Date: 20060701
  Serious: Yes (Other)
  Sender: FDA-Public Use
  Company Number: 200510963

PATIENT
  Age: 8 Year
  Sex: Female
  Weight: 32 kg

DRUGS (3)
  1. BOTOX [Suspect]
     Indication: MUSCLE SPASTICITY
     Dosage: 120 UNITS ONCE IM
     Route: 030
     Dates: start: 20050928
  2. TRILEPTAL [Concomitant]
  3. URBANYL [Concomitant]

REACTIONS (2)
  - CONDITION AGGRAVATED [None]
  - CONVULSION [None]
